APPROVED DRUG PRODUCT: FINASTERIDE
Active Ingredient: FINASTERIDE
Strength: 5MG
Dosage Form/Route: TABLET;ORAL
Application: A090061 | Product #001 | TE Code: AB
Applicant: HETERO LABS LTD UNIT III
Approved: Jun 7, 2010 | RLD: No | RS: No | Type: RX